FAERS Safety Report 15183864 (Version 1)
Quarter: 2018Q3

REPORT INFORMATION
  Report Type: Spontaneous
  Country: US (occurrence: US)
  Receive Date: 20180723
  Receipt Date: 20180723
  Transmission Date: 20181010
  Serious: No
  Sender: FDA-Public Use
  Company Number: US-SA-2018SA196465

PATIENT
  Age: 95 Year
  Sex: Female

DRUGS (1)
  1. DULCOLAX (BISACODYL) [Suspect]
     Active Substance: BISACODYL
     Dosage: 3 DF

REACTIONS (4)
  - Drug ineffective [Unknown]
  - Drug administered to patient of inappropriate age [Unknown]
  - Bowel movement irregularity [Unknown]
  - Product use issue [Unknown]
